FAERS Safety Report 5816018-8 (Version None)
Quarter: 2008Q3

REPORT INFORMATION
  Report Type: 
  Country: None (occurrence: None)
  Receive Date: 20080721
  Receipt Date: 20080711
  Transmission Date: 20090109
  Serious: Yes (Other)
  Sender: FDA-Public Use
  Company Number: PHHY2008US13787

PATIENT
  Sex: Female

DRUGS (2)
  1. LIORESAL [Suspect]
     Indication: MUSCLE SPASTICITY
     Dosage: 12 MCG DAILY
     Route: 037
  2. MORPHINE [Concomitant]
     Dosage: UNK

REACTIONS (3)
  - MUSCULAR WEAKNESS [None]
  - NAUSEA [None]
  - VOMITING [None]
